FAERS Safety Report 7088514-X (Version None)
Quarter: 2010Q4

REPORT INFORMATION
  Report Type: 
  Country: None (occurrence: None)
  Receive Date: 20101108
  Receipt Date: 20101029
  Transmission Date: 20110411
  Serious: Yes (Hospitalization, Other)
  Sender: FDA-Public Use
  Company Number: TW-PFIZER INC-2010137695

PATIENT
  Age: 66 Year
  Sex: Male
  Weight: 54 kg

DRUGS (4)
  1. DILANTIN [Suspect]
     Indication: EPILEPSY
     Dosage: 300 MG, AT BEDTIME
     Route: 048
     Dates: start: 20100914, end: 20101011
  2. ACETYLSALICYLIC ACID [Concomitant]
     Indication: THROMBOSIS PROPHYLAXIS
     Dosage: 100 MG, 1X/DAY
     Route: 048
     Dates: start: 20100803, end: 20101011
  3. RIVOTRIL [Concomitant]
     Indication: EPILEPSY
     Dosage: 0.5 MG, 1X/DAY AT BEDTIME
     Route: 048
     Dates: start: 20100803
  4. NORVASC [Concomitant]
     Indication: HYPERTENSION
     Dosage: 5 MG, 1X/DAY
     Route: 048
     Dates: start: 20100803

REACTIONS (3)
  - CONJUNCTIVITIS [None]
  - LIVER FUNCTION TEST ABNORMAL [None]
  - STEVENS-JOHNSON SYNDROME [None]
